FAERS Safety Report 7943375-9 (Version None)
Quarter: 2011Q4

REPORT INFORMATION
  Report Type: 
  Country: None (occurrence: None)
  Receive Date: 20111128
  Receipt Date: 20110125
  Transmission Date: 20120403
  Serious: No
  Sender: FDA-Public Use
  Company Number: US-TYCO HEALTHCARE/MALLINCKRODT-T201100129

PATIENT
  Sex: Female

DRUGS (3)
  1. ULTRA-TECHNEKOW [Suspect]
     Indication: SCAN MYOCARDIAL PERFUSION
     Dosage: 10.1 MCI SINGLE, REST
     Dates: start: 20110117, end: 20110117
  2. TECHNETIUM TC 99M SESTAMIBI [Suspect]
     Indication: SCAN MYOCARDIAL PERFUSION
  3. ULTRA-TECHNEKOW [Suspect]
     Dosage: 30 MCI SINGLE, STRESS
     Route: 042
     Dates: start: 20110117, end: 20110117

REACTIONS (3)
  - DIARRHOEA [None]
  - HEADACHE [None]
  - NAUSEA [None]
